FAERS Safety Report 23955826 (Version 1)
Quarter: 2024Q2

REPORT INFORMATION
  Report Type: Spontaneous
  Country: CA (occurrence: CA)
  Receive Date: 20240610
  Receipt Date: 20240610
  Transmission Date: 20240715
  Serious: Yes (Life-Threatening, Hospitalization, Other)
  Sender: FDA-Public Use
  Company Number: CA-TEVA-VS-3205672

PATIENT
  Age: 2 Year
  Sex: Male

DRUGS (4)
  1. ETOPOSIDE [Suspect]
     Active Substance: ETOPOSIDE
     Indication: Product used for unknown indication
     Dosage: DOSE FORM: LIQUID INTRAVENOUS
     Route: 042
  2. CYTARABINE [Suspect]
     Active Substance: CYTARABINE
     Indication: Burkitt^s lymphoma
     Dosage: DOSE FORM: SOLUTION INTRATHECAL, DESCRIPTION: CYTARABINE 10ML +?20ML SINGLE DOSE VIALS
     Route: 042
  3. CYTARABINE [Suspect]
     Active Substance: CYTARABINE
     Indication: Burkitt^s lymphoma
     Dosage: DOSE FORM: SOLUTION INTRATHECAL
     Route: 042
  4. TRUXIMA [Suspect]
     Active Substance: RITUXIMAB-ABBS
     Indication: Burkitt^s lymphoma
     Dosage: DOSE FORM: SOLUTION INTRAVENOUS, DESCRIPTION: TRUXIMA SINGLE-DOSE VIAL - 10 MG/ML, FREQUENCY: ONCE
     Route: 042

REACTIONS (7)
  - Pyrexia [Recovered/Resolved]
  - Cough [Recovered/Resolved]
  - Enterovirus test positive [Recovered/Resolved]
  - Haemophilus test positive [Recovered/Resolved]
  - Human rhinovirus test positive [Recovered/Resolved]
  - Neutropenia [Recovered/Resolved]
  - Rhinorrhoea [Recovered/Resolved]
